FAERS Safety Report 5609044-5 (Version None)
Quarter: 2008Q1

REPORT INFORMATION
  Report Type: 
  Country: None (occurrence: None)
  Receive Date: 20080131
  Receipt Date: 20080124
  Transmission Date: 20080703
  Serious: Yes (Hospitalization)
  Sender: FDA-Public Use
  Company Number: GR-AVENTIS-200721192GDDC

PATIENT
  Age: 83 Year
  Sex: Female

DRUGS (1)
  1. FLAGYL [Suspect]
     Indication: DIVERTICULITIS
     Route: 042
     Dates: start: 20071005, end: 20071006

REACTIONS (1)
  - NEUROPATHY PERIPHERAL [None]
